FAERS Safety Report 4513063-X (Version None)
Quarter: 2004Q4

REPORT INFORMATION
  Report Type: 
  Country: None (occurrence: None)
  Receive Date: 20040928
  Receipt Date: 20040707
  Transmission Date: 20050328
  Serious: No
  Sender: FDA-Public Use
  Company Number: 04P-163-0266722-00

PATIENT
  Age: 64 Year
  Sex: Female

DRUGS (13)
  1. HUMIRA [Suspect]
     Indication: RHEUMATOID ARTHRITIS
     Dosage: 40 MG, 1 IN 2 WK, SUBCUTANEOUS
     Route: 058
     Dates: start: 20040524
  2. CLOPIDOGREL BISULFATE [Concomitant]
  3. ACETYLSALICYLIC ACID [Concomitant]
  4. PREDNISONE [Concomitant]
  5. FOLIC ACID [Concomitant]
  6. RANITIDINE [Concomitant]
  7. NAPROXEN [Concomitant]
  8. ALENDRONATE SODIUM [Concomitant]
  9. CALCIUM [Concomitant]
  10. TOCOPHEROL CONCENTRATE CAP [Concomitant]
  11. VITAMIN B COMPLEX CAP [Concomitant]
  12. ZOCOR [Concomitant]
  13. METHOTREXATE [Concomitant]

REACTIONS (1)
  - INCREASED TENDENCY TO BRUISE [None]
